FAERS Safety Report 9066983 (Version 1)
Quarter: 2013Q1

REPORT INFORMATION
  Report Type: Spontaneous
  Country: US (occurrence: US)
  Receive Date: 20130201
  Receipt Date: 20130201
  Transmission Date: 20140127
  Serious: No
  Sender: FDA-Public Use
  Company Number: US-ABBOTT-12P-163-1028556-00

PATIENT
  Sex: Female
  Weight: 63.11 kg

DRUGS (1)
  1. HUMIRA [Suspect]
     Indication: RHEUMATOID ARTHRITIS
     Dates: start: 1999

REACTIONS (3)
  - Sensory loss [Not Recovered/Not Resolved]
  - Spinal fracture [Unknown]
  - Back pain [Not Recovered/Not Resolved]
